FAERS Safety Report 6357791-2 (Version None)
Quarter: 2009Q3

REPORT INFORMATION
  Report Type: 
  Country: None (occurrence: None)
  Receive Date: 20090914
  Receipt Date: 20090831
  Transmission Date: 20100115
  Serious: Yes (Other)
  Sender: FDA-Public Use
  Company Number: 2009AP003526

PATIENT
  Age: 73 Year
  Sex: Male

DRUGS (5)
  1. PRAVASTATIN SODIUM [Suspect]
     Indication: BLOOD CHOLESTEROL INCREASED
     Dosage: 20 MG; QD; PO
     Route: 048
     Dates: start: 20090401, end: 20090701
  2. UBIDECARENONE [Concomitant]
  3. FOSINOPRIL SODIUM [Concomitant]
  4. ACETYLSALICYLIC ACID SRT [Concomitant]
  5. ATORVASTATIN [Concomitant]

REACTIONS (9)
  - ABDOMINAL PAIN UPPER [None]
  - CHEST PAIN [None]
  - CHOLELITHIASIS [None]
  - DECREASED APPETITE [None]
  - FLATULENCE [None]
  - GALLBLADDER NON-FUNCTIONING [None]
  - MALAISE [None]
  - PAIN [None]
  - PAIN IN EXTREMITY [None]
